FAERS Safety Report 4483884-0 (Version None)
Quarter: 2004Q4

REPORT INFORMATION
  Report Type: 
  Country: None (occurrence: None)
  Receive Date: 20041020
  Receipt Date: 20041005
  Transmission Date: 20050328
  Serious: Yes (Death)
  Sender: FDA-Public Use
  Company Number: K200401520

PATIENT
  Age: 36 Year

DRUGS (2)
  1. TUSSIGON [Suspect]
     Dosage: ORAL
     Route: 048
  2. DIAZINON (DIAZINON) [Suspect]
     Dosage: ORAL
     Route: 048

REACTIONS (2)
  - DRUG ABUSER [None]
  - MULTIPLE DRUG OVERDOSE [None]
